FAERS Safety Report 13489322 (Version 1)
Quarter: 2017Q2

REPORT INFORMATION
  Report Type: Spontaneous
  Country: US (occurrence: US)
  Receive Date: 20170426
  Receipt Date: 20170426
  Transmission Date: 20170830
  Serious: No
  Sender: FDA-Public Use
  Company Number: US-ALKERMES INC.-ALK-2017-000733

PATIENT
  Age: 21 Year
  Sex: Female
  Weight: 43.84 kg

DRUGS (2)
  1. VIVITROL [Suspect]
     Active Substance: NALTREXONE
     Indication: DRUG USE DISORDER
     Dosage: 380 MG, QMO
     Route: 030
     Dates: start: 201608, end: 201609
  2. VIVITROL [Suspect]
     Active Substance: NALTREXONE
     Dosage: 380 MG, QMO
     Route: 030
     Dates: start: 20170223

REACTIONS (21)
  - Delusional perception [Unknown]
  - Weight fluctuation [Recovered/Resolved]
  - Diarrhoea [Unknown]
  - Drug use disorder [Recovered/Resolved]
  - Nausea [Unknown]
  - Drug withdrawal syndrome [Recovered/Resolved]
  - Amnesia [Unknown]
  - Restless legs syndrome [Unknown]
  - Dyspnoea [Unknown]
  - Dysarthria [Unknown]
  - Depressed level of consciousness [Recovered/Resolved]
  - Euphoric mood [Recovered/Resolved]
  - Suicidal ideation [Unknown]
  - Kidney infection [Unknown]
  - Drug dose omission [Recovered/Resolved]
  - Muscle spasms [Unknown]
  - Dehydration [Unknown]
  - Anxiety [Unknown]
  - Hallucination [Unknown]
  - Vomiting [Not Recovered/Not Resolved]
  - Sleep disorder [Not Recovered/Not Resolved]

NARRATIVE: CASE EVENT DATE: 201608
